FAERS Safety Report 8358769-X (Version None)
Quarter: 2012Q2

REPORT INFORMATION
  Report Type: 
  Country: None (occurrence: None)
  Receive Date: 20120514
  Receipt Date: 20120502
  Transmission Date: 20120825
  Serious: Yes (Hospitalization)
  Sender: FDA-Public Use
  Company Number: GB-ELI_LILLY_AND_COMPANY-IE201204002848

PATIENT
  Sex: Female

DRUGS (6)
  1. MOVICOL                            /01625101/ [Concomitant]
  2. SERTRALINE HYDROCHLORIDE [Concomitant]
  3. FORTEO [Suspect]
     Indication: OSTEOPOROSIS
     Dosage: 20 UG, UNK
     Route: 058
     Dates: start: 20120404
  4. ACETAMINOPHEN [Concomitant]
  5. CALCIUM CARBONATE [Concomitant]
  6. RAMIPRIL [Concomitant]

REACTIONS (2)
  - CONVULSION [None]
  - DIZZINESS [None]
